FAERS Safety Report 13015702 (Version 2)
Quarter: 2017Q1

REPORT INFORMATION
  Report Type: Report from Study
  Country: None (occurrence: US)
  Receive Date: 20161212
  Receipt Date: 20170210
  Transmission Date: 20170428
  Serious: Yes (Hospitalization, Other)
  Sender: FDA-Public Use
  Company Number: US-ABBVIE-16K-163-1802536-00

PATIENT
  Age: 62 Year
  Sex: Female
  Weight: 102.15 kg

DRUGS (8)
  1. TRILEPTAL [Concomitant]
     Active Substance: OXCARBAZEPINE
     Indication: SEIZURE
  2. HUMIRA [Suspect]
     Active Substance: ADALIMUMAB
     Indication: RHEUMATOID ARTHRITIS
     Route: 058
     Dates: start: 2014, end: 201611
  3. NORCO [Concomitant]
     Active Substance: ACETAMINOPHEN\HYDROCODONE BITARTRATE
     Indication: BACK PAIN
  4. FLEXERIL [Concomitant]
     Active Substance: CYCLOBENZAPRINE HYDROCHLORIDE
     Indication: MUSCLE SPASMS
  5. VITAMIN B12 [Concomitant]
     Active Substance: CYANOCOBALAMIN
     Indication: VITAMIN SUPPLEMENTATION
  6. AMBIEN CR [Concomitant]
     Active Substance: ZOLPIDEM TARTRATE
     Indication: INSOMNIA
  7. FOLIC ACID. [Concomitant]
     Active Substance: FOLIC ACID
     Indication: PRODUCT USED FOR UNKNOWN INDICATION
  8. VALIUM [Concomitant]
     Active Substance: DIAZEPAM
     Indication: ANXIETY

REACTIONS (15)
  - Face injury [Unknown]
  - Road traffic accident [Recovered/Resolved]
  - Contusion [Recovering/Resolving]
  - Abdominal distension [Not Recovered/Not Resolved]
  - Musculoskeletal chest pain [Not Recovered/Not Resolved]
  - Weight decreased [Recovered/Resolved]
  - Head injury [Unknown]
  - Chest injury [Unknown]
  - Laceration [Recovered/Resolved]
  - Dizziness [Recovered/Resolved]
  - Bone deformity [Not Recovered/Not Resolved]
  - Seizure [Not Recovered/Not Resolved]
  - Contusion [Recovered/Resolved]
  - Traumatic haemorrhage [Recovered/Resolved]
  - Neck pain [Recovering/Resolving]

NARRATIVE: CASE EVENT DATE: 20161201
